FAERS Safety Report 6584431-X (Version None)
Quarter: 2010Q1

REPORT INFORMATION
  Report Type: 
  Country: None (occurrence: None)
  Receive Date: 20100216
  Receipt Date: 20100125
  Transmission Date: 20100710
  Serious: No
  Sender: FDA-Public Use
  Company Number: US-ABBOTT-10P-163-0622286-00

PATIENT
  Sex: Male
  Weight: 102.15 kg

DRUGS (6)
  1. SIMCOR [Suspect]
     Indication: MYOCARDIAL INFARCTION
     Dosage: 1000MG/20MG  AT BEDTIME
     Route: 048
     Dates: start: 20090501
  2. SIMCOR [Suspect]
     Indication: HIGH DENSITY LIPOPROTEIN DECREASED
  3. METFORMIN HCL [Concomitant]
     Indication: DRUG USE FOR UNKNOWN INDICATION
  4. LISINOPRIL [Concomitant]
     Indication: DRUG USE FOR UNKNOWN INDICATION
  5. PLAVIX [Concomitant]
     Indication: DRUG USE FOR UNKNOWN INDICATION
  6. CARVEDILOL [Concomitant]
     Indication: DRUG USE FOR UNKNOWN INDICATION

REACTIONS (3)
  - MUSCLE FATIGUE [None]
  - RASH [None]
  - SKIN BURNING SENSATION [None]
